FAERS Safety Report 7637913-3 (Version None)
Quarter: 2011Q3

REPORT INFORMATION
  Report Type: 
  Country: None (occurrence: None)
  Receive Date: 20110722
  Receipt Date: 20110722
  Transmission Date: 20111222
  Serious: Yes (Hospitalization)
  Sender: FDA-Public Use
  Company Number: None

PATIENT
  Age: 60 Year
  Sex: Male
  Weight: 116.4 kg

DRUGS (2)
  1. BUPROPION HCL [Suspect]
     Indication: SMOKING CESSATION THERAPY
     Dosage: 75 MG BID PO
     Route: 048
     Dates: start: 20060717, end: 20110710
  2. BUPROPION HCL [Suspect]
     Indication: DEPRESSION
     Dosage: 75 MG BID PO
     Route: 048
     Dates: start: 20060717, end: 20110710

REACTIONS (3)
  - EMPHYSEMA [None]
  - DYSPNOEA [None]
  - CONVULSION [None]
